FAERS Safety Report 5653052-5 (Version None)
Quarter: 2008Q1

REPORT INFORMATION
  Report Type: 
  Country: None (occurrence: None)
  Receive Date: 20080306
  Receipt Date: 20080229
  Transmission Date: 20080703
  Serious: Yes (Other)
  Sender: FDA-Public Use
  Company Number: GB-ALLERGAN-0802474US

PATIENT
  Sex: Female

DRUGS (1)
  1. BOTOX [Suspect]
     Indication: DRUG USE FOR UNKNOWN INDICATION
     Dosage: 15 UNITS, SINGLE
     Route: 030
     Dates: start: 20080201, end: 20080201

REACTIONS (2)
  - FACIAL PALSY [None]
  - SWELLING FACE [None]
